FAERS Safety Report 8453806-6 (Version None)
Quarter: 2012Q2

REPORT INFORMATION
  Report Type: 
  Country: None (occurrence: None)
  Receive Date: 20120620
  Receipt Date: 20120607
  Transmission Date: 20120825
  Serious: No
  Sender: FDA-Public Use
  Company Number: US-ASTRAZENECA-2012SE38240

PATIENT
  Age: 66 Year
  Sex: Female
  Weight: 72.6 kg

DRUGS (6)
  1. SYNTHROID [Concomitant]
  2. IMITREX [Concomitant]
  3. VITAMIN TAB [Concomitant]
  4. NEXIUM [Suspect]
     Route: 048
  5. CRESTOR [Suspect]
     Indication: BLOOD CHOLESTEROL ABNORMAL
     Route: 048
     Dates: start: 20100101
  6. VESICARE [Concomitant]

REACTIONS (3)
  - MEMORY IMPAIRMENT [None]
  - PAIN IN EXTREMITY [None]
  - DRUG DOSE OMISSION [None]
